FAERS Safety Report 16576496 (Version 1)
Quarter: 2019Q3

REPORT INFORMATION
  Report Type: Not Available
  Country: US (occurrence: US)
  Receive Date: 20190716
  Receipt Date: 20190716
  Transmission Date: 20191004
  Serious: Yes (Hospitalization)
  Sender: FDA-Public Use
  Company Number: US-SWEDISH ORPHAN BIOVITRUM-2018US0533

PATIENT
  Age: 14 Year
  Sex: Male

DRUGS (1)
  1. ORFADIN [Suspect]
     Active Substance: NITISINONE
     Indication: TYROSINAEMIA
     Route: 048
     Dates: start: 20140404, end: 20180415

REACTIONS (1)
  - Liver transplant [Recovering/Resolving]

NARRATIVE: CASE EVENT DATE: 20180416
